FAERS Safety Report 8504328-5 (Version None)
Quarter: 2012Q3

REPORT INFORMATION
  Report Type: 
  Country: None (occurrence: None)
  Receive Date: 20120711
  Receipt Date: 20120710
  Transmission Date: 20120928
  Serious: Yes (Other)
  Sender: FDA-Public Use
  Company Number: US-PFIZER INC-2012165615

PATIENT
  Sex: Female
  Weight: 71.655 kg

DRUGS (1)
  1. CHANTIX [Suspect]
     Indication: SMOKING CESSATION THERAPY
     Dosage: UNK, DAILY
     Dates: start: 20120630, end: 20120703

REACTIONS (6)
  - SOMNOLENCE [None]
  - CHEST PAIN [None]
  - HYPERTENSION [None]
  - HEART RATE INCREASED [None]
  - DYSPNOEA [None]
  - FEELING ABNORMAL [None]
